FAERS Safety Report 4522261-0 (Version None)
Quarter: 2004Q4

REPORT INFORMATION
  Report Type: 
  Country: None (occurrence: None)
  Receive Date: 20041207
  Receipt Date: 20041118
  Transmission Date: 20050328
  Serious: Yes (Hospitalization, Other)
  Sender: FDA-Public Use
  Company Number: US_0405103315

PATIENT
  Age: 39 Year
  Sex: Male
  Weight: 100 kg

DRUGS (33)
  1. ZYPREXA [Suspect]
     Dosage: 12.5 MG/1 AT BEDTIME
     Dates: start: 20010101, end: 20040701
  2. ZOLOFT [Concomitant]
  3. GLUCOPHAGE XR(METFORMIN HYDROCHLORIDE) [Concomitant]
  4. ZOCOR (SIMVASTATIN RATIOPHARM) [Concomitant]
  5. LIPITOR (ATORVASTATIN CALCIUM0 [Concomitant]
  6. VERAPAMIL [Concomitant]
  7. ASPIRIN [Concomitant]
  8. MULTI-VITAMIN [Concomitant]
  9. HALDOL [Concomitant]
  10. PAXIL [Concomitant]
  11. ADVICOR [Concomitant]
  12. COLACE (DOCUSATE SODIUM) [Concomitant]
  13. COZAAR [Concomitant]
  14. ALLEGRA (FEXOFENADINE HYDROCHLORDIE) [Concomitant]
  15. LORCET-HD [Concomitant]
  16. TYLENOL W/ CODEINE [Concomitant]
  17. DARVOCET-N 100 [Concomitant]
  18. ULTRAM [Concomitant]
  19. RISPERDAL [Concomitant]
  20. PERCOCET [Concomitant]
  21. VICODIN [Concomitant]
  22. NASCORT (BUDESONIDE) [Concomitant]
  23. COGENTIN [Concomitant]
  24. ATIVAN [Concomitant]
  25. TRANXENE [Concomitant]
  26. SURBEX-T [Concomitant]
  27. MYLANTA [Concomitant]
  28. MILK OF MAGNESIA TAB [Concomitant]
  29. ARIPIPRAZOLE [Concomitant]
  30. VERAPAMIL [Concomitant]
  31. CLORAZEPATE DIPOTASSIUM [Concomitant]
  32. THIAMINE HCL [Concomitant]
  33. BENADRYL [Concomitant]

REACTIONS (35)
  - ABDOMINAL PAIN UPPER [None]
  - ADENOMA BENIGN [None]
  - ANXIETY [None]
  - ARTHRALGIA [None]
  - CHEST PAIN [None]
  - CONTUSION [None]
  - DIABETES MELLITUS [None]
  - DIFFICULTY IN WALKING [None]
  - DILATATION ATRIAL [None]
  - DISTURBANCE IN ATTENTION [None]
  - DRUG ABUSER [None]
  - DRUG SCREEN POSITIVE [None]
  - DYSPNOEA [None]
  - EAR PAIN [None]
  - EJECTION FRACTION DECREASED [None]
  - FATIGUE [None]
  - GAIT DISTURBANCE [None]
  - GINGIVAL PAIN [None]
  - HALLUCINATION [None]
  - HEADACHE [None]
  - HYPOAESTHESIA [None]
  - IRRITABILITY [None]
  - LOCAL SWELLING [None]
  - MAJOR DEPRESSION [None]
  - MARKEDLY REDUCED DIETARY INTAKE [None]
  - MITRAL VALVE INCOMPETENCE [None]
  - NECK PAIN [None]
  - NERVOUSNESS [None]
  - OEDEMA PERIPHERAL [None]
  - PAIN IN EXTREMITY [None]
  - PAIN IN JAW [None]
  - SUICIDAL IDEATION [None]
  - TREMOR [None]
  - TRICUSPID VALVE INCOMPETENCE [None]
  - VENTRICULAR HYPERTROPHY [None]
